FAERS Safety Report 6164189-9 (Version None)
Quarter: 2009Q2

REPORT INFORMATION
  Report Type: 
  Country: None (occurrence: None)
  Receive Date: 20090420
  Receipt Date: 20090406
  Transmission Date: 20091009
  Serious: Yes (Hospitalization)
  Sender: FDA-Public Use
  Company Number: IT-000160

PATIENT
  Age: 9 Year
  Sex: Female

DRUGS (1)
  1. HUMAN GROWTH HORMONE, RECOMBINANT (SOMATROPIN) [Suspect]
     Indication: GROWTH HORMONE DEFICIENCY

REACTIONS (5)
  - HETEROPHORIA [None]
  - INTRACRANIAL PRESSURE INCREASED [None]
  - METABOLIC ACIDOSIS [None]
  - PAPILLOEDEMA [None]
  - STRABISMUS [None]
